FAERS Safety Report 9801856 (Version 1)
Quarter: 2014Q1

REPORT INFORMATION
  Report Type: Spontaneous
  Country: US (occurrence: US)
  Receive Date: 20140107
  Receipt Date: 20140107
  Transmission Date: 20141002
  Serious: No
  Sender: FDA-Public Use
  Company Number: US-PFIZER INC-2014000738

PATIENT
  Sex: Female
  Weight: 48.53 kg

DRUGS (4)
  1. ESTRING [Suspect]
     Indication: ATROPHIC VULVOVAGINITIS
     Dosage: UNK, EVERY 3 MONTHS
  2. FLONASE [Concomitant]
     Dosage: UNK
  3. CALCIUM [Concomitant]
     Dosage: UNK
  4. RAMIPRIL [Concomitant]
     Dosage: 5 MG, UNK

REACTIONS (1)
  - Fungal infection [Unknown]
